FAERS Safety Report 23719040 (Version 1)
Quarter: 2024Q2

REPORT INFORMATION
  Report Type: Spontaneous
  Country: US (occurrence: None)
  Receive Date: 20240408
  Receipt Date: 20240408
  Transmission Date: 20240716
  Serious: No
  Sender: FDA-Public Use
  Company Number: 2024A067466

PATIENT
  Sex: Female

DRUGS (1)
  1. FARXIGA [Suspect]
     Active Substance: DAPAGLIFLOZIN PROPANEDIOL
     Indication: Left ventricular failure
     Route: 048
     Dates: end: 202403

REACTIONS (4)
  - Pruritus [Unknown]
  - Pruritus genital [Unknown]
  - Eye pruritus [Unknown]
  - Insomnia [Unknown]
